FAERS Safety Report 4657115-2 (Version None)
Quarter: 2005Q2

REPORT INFORMATION
  Report Type: 
  Country: None (occurrence: None)
  Receive Date: 20050506
  Receipt Date: 20050429
  Transmission Date: 20051028
  Serious: Yes (Hospitalization, Other)
  Sender: FDA-Public Use
  Company Number: 2005037793

PATIENT
  Age: 76 Year
  Sex: Female

DRUGS (5)
  1. LIPITOR [Suspect]
     Indication: BLOOD CHOLESTEROL INCREASED
     Dosage: 80 MG (80 MG), ORAL
     Route: 048
     Dates: start: 20020507
  2. GATIFLOXACIN [Suspect]
     Indication: PNEUMONIA
     Dosage: ORAL
     Route: 048
     Dates: start: 20041201
  3. TENECTEPLASE (TENECTEPLASE) [Suspect]
     Indication: ATHEROSCLEROSIS
     Dates: start: 20041216
  4. FOSINOPRIL (FOSINOPRIL SODIUM) [Concomitant]
  5. CLONIDINE [Concomitant]

REACTIONS (19)
  - ANAEMIA [None]
  - ARTHRITIS [None]
  - ATROPHY [None]
  - BACTERIAL INFECTION [None]
  - BLOOD TRIGLYCERIDES INCREASED [None]
  - BREAST PAIN [None]
  - COUGH [None]
  - DECREASED ACTIVITY [None]
  - DYSPNOEA [None]
  - FALL [None]
  - FATIGUE [None]
  - HAEMORRHAGE [None]
  - INFLUENZA [None]
  - MOBILITY DECREASED [None]
  - MUSCULAR WEAKNESS [None]
  - MYOCARDIAL INFARCTION [None]
  - PAIN IN EXTREMITY [None]
  - PNEUMONIA [None]
  - RASH [None]
